FAERS Safety Report 11326277 (Version 1)
Quarter: 2015Q3

REPORT INFORMATION
  Report Type: Spontaneous
  Country: US (occurrence: None)
  Receive Date: 20150629
  Receipt Date: 20150629
  Transmission Date: 20151125
  Serious: No
  Sender: FDA-Public Use
  Company Number: A-NJ2014-108480

PATIENT
  Age: 57 Year
  Sex: Female

DRUGS (10)
  1. CYCLOBENZAPRINE (CYCLOBENZAPRINE HYDROCHLORIDE) [Concomitant]
  2. GABAPENTIN (GABAPENTIN) [Concomitant]
     Active Substance: GABAPENTIN
  3. OPSUMIT [Suspect]
     Active Substance: MACITENTAN
     Indication: PULMONARY ARTERIAL HYPERTENSION
     Route: 048
     Dates: start: 20141014
  4. REMODULIN [Suspect]
     Active Substance: TREPROSTINIL
     Indication: PULMONARY ARTERIAL HYPERTENSION
     Dosage: 52 NG/KG, PER MIN
     Route: 058
     Dates: start: 20140108
  5. FISH OIL (FISH OIL) [Concomitant]
     Active Substance: FISH OIL
  6. SILDENAFIL (SILDENAFIL CITRATE) [Concomitant]
     Active Substance: SILDENAFIL CITRATE
  7. ASPIRIN (ACETYLSALICYLIC ACID) [Concomitant]
     Active Substance: ASPIRIN
  8. FLUTICASONE PROPIONATE (FLUTICASONE PROPIONATE) (FLUTICASONE PROPIONATE) [Concomitant]
     Active Substance: FLUTICASONE PROPIONATE
  9. LEVOTHYROXINE (LEVOTHYROXINE) [Concomitant]
     Active Substance: LEVOTHYROXINE
  10. CALCIUM (CALCIUM GLUCONATE) [Concomitant]

REACTIONS (1)
  - Swelling face [None]

NARRATIVE: CASE EVENT DATE: 20141017
